FAERS Safety Report 7382257-0 (Version None)
Quarter: 2011Q1

REPORT INFORMATION
  Report Type: 
  Country: None (occurrence: None)
  Receive Date: 20110329
  Receipt Date: 20110208
  Transmission Date: 20110831
  Serious: Yes (Hospitalization)
  Sender: FDA-Public Use
  Company Number: TW-BAYER-2011-012262

PATIENT
  Age: 31 Year
  Sex: Male

DRUGS (1)
  1. INTERFERON BETA-1B [Suspect]
     Dosage: 1 ML, QOD
     Route: 058

REACTIONS (2)
  - INJECTION SITE REACTION [None]
  - INFECTION [None]
